FAERS Safety Report 4339102-7 (Version None)
Quarter: 2004Q2

REPORT INFORMATION
  Report Type: 
  Country: None (occurrence: None)
  Receive Date: 20040415
  Receipt Date: 20040322
  Transmission Date: 20050107
  Serious: Yes (Hospitalization)
  Sender: FDA-Public Use
  Company Number: 200411289FR

PATIENT
  Age: 68 Year
  Sex: Female

DRUGS (3)
  1. TAXOTERE [Suspect]
     Indication: CARCINOMA
     Route: 042
     Dates: start: 20040227, end: 20040227
  2. CISPLATIN [Suspect]
     Indication: CARCINOMA
     Route: 042
     Dates: start: 20040227, end: 20040227
  3. FLUOROURACIL [Suspect]
     Indication: CARCINOMA
     Route: 042
     Dates: start: 20040227, end: 20040302

REACTIONS (14)
  - ASCITES [None]
  - ASTHENIA [None]
  - ATRIAL FIBRILLATION [None]
  - DIARRHOEA [None]
  - DRUG TOXICITY [None]
  - DYSPNOEA EXERTIONAL [None]
  - GENERAL PHYSICAL HEALTH DETERIORATION [None]
  - HYPOKALAEMIA [None]
  - MARKEDLY REDUCED DIETARY INTAKE [None]
  - MUCOSAL INFLAMMATION [None]
  - ODYNOPHAGIA [None]
  - OEDEMA PERIPHERAL [None]
  - ORAL PAIN [None]
  - PLEURAL EFFUSION [None]
